FAERS Safety Report 17044064 (Version 2)
Quarter: 2019Q4

REPORT INFORMATION
  Report Type: Spontaneous
  Country: CH (occurrence: CH)
  Receive Date: 20191118
  Receipt Date: 20191217
  Transmission Date: 20200122
  Serious: Yes (Death, Life-Threatening, Other)
  Sender: FDA-Public Use
  Company Number: CH-ASTRAZENECA-2019SF62704

PATIENT
  Age: 81 Year
  Sex: Male
  Weight: 83 kg

DRUGS (118)
  1. METOPROLOL. [Concomitant]
     Active Substance: METOPROLOL
     Route: 065
     Dates: start: 20180820, end: 20180820
  2. TORASEMIDE [Concomitant]
     Active Substance: TORSEMIDE
     Route: 065
     Dates: start: 20180916, end: 20180917
  3. PHENPROCOUMON [Concomitant]
     Active Substance: PHENPROCOUMON
     Route: 065
     Dates: start: 20180830, end: 20180831
  4. HEPARIN [Concomitant]
     Active Substance: HEPARIN SODIUM
     Route: 065
     Dates: start: 20180912, end: 20180918
  5. FUROSEMIDE. [Concomitant]
     Active Substance: FUROSEMIDE
     Route: 065
     Dates: start: 20180824, end: 20180824
  6. SODIUM BICARBONATE. [Concomitant]
     Active Substance: SODIUM BICARBONATE
     Route: 065
     Dates: start: 20180829, end: 20180909
  7. SODIUM BICARBONATE. [Concomitant]
     Active Substance: SODIUM BICARBONATE
     Route: 065
     Dates: start: 20180914, end: 20180914
  8. GUAIFENESIN/CODEIN PHOSPHATE [Concomitant]
     Route: 065
     Dates: start: 20180831, end: 20180831
  9. GUAIFENESIN/CODEIN PHOSPHATE [Concomitant]
     Route: 065
     Dates: start: 20180901, end: 20180902
  10. NACL [Concomitant]
     Active Substance: SODIUM CHLORIDE
     Route: 065
     Dates: start: 20180830, end: 20180830
  11. CODEIN [Concomitant]
     Active Substance: CODEINE
     Route: 065
     Dates: start: 20180912, end: 20180912
  12. VALSARTAN. [Concomitant]
     Active Substance: VALSARTAN
     Route: 065
     Dates: start: 20180913, end: 20180913
  13. CEFEPIME [Concomitant]
     Active Substance: CEFEPIME HYDROCHLORIDE
     Route: 065
     Dates: start: 20180917, end: 20180917
  14. CO-AMOXICILLINE [Concomitant]
     Route: 065
     Dates: start: 20180917, end: 20180918
  15. AMIODARONE [Interacting]
     Active Substance: AMIODARONE
     Route: 065
  16. SACUBITRIL/VALSARTAN [Interacting]
     Active Substance: SACUBITRIL\VALSARTAN
     Route: 065
  17. SACUBITRIL/VALSARTAN [Interacting]
     Active Substance: SACUBITRIL\VALSARTAN
     Route: 065
     Dates: start: 20180902, end: 20180902
  18. TORASEMIDE [Concomitant]
     Active Substance: TORSEMIDE
     Route: 065
     Dates: start: 20180825, end: 20180828
  19. TORASEMIDE [Concomitant]
     Active Substance: TORSEMIDE
     Route: 065
     Dates: start: 20180918, end: 20180918
  20. SITAGLIPTIN [Concomitant]
     Active Substance: SITAGLIPTIN
     Route: 065
     Dates: start: 20180821, end: 20180829
  21. PHENPROCOUMON [Concomitant]
     Active Substance: PHENPROCOUMON
     Route: 065
     Dates: start: 20180902, end: 20180905
  22. PHENPROCOUMON [Concomitant]
     Active Substance: PHENPROCOUMON
     Route: 065
     Dates: start: 20180909, end: 20180909
  23. HEPARIN [Concomitant]
     Active Substance: HEPARIN SODIUM
     Route: 065
     Dates: start: 20180828, end: 20180829
  24. FUROSEMIDE. [Concomitant]
     Active Substance: FUROSEMIDE
     Route: 065
     Dates: start: 20180827, end: 20180827
  25. SODIUM BICARBONATE. [Concomitant]
     Active Substance: SODIUM BICARBONATE
     Route: 065
     Dates: start: 20180916, end: 20180916
  26. GUAIFENESIN/CODEIN PHOSPHATE [Concomitant]
     Route: 065
     Dates: start: 20180911, end: 20180911
  27. GRANISETRON [Concomitant]
     Active Substance: GRANISETRON
     Route: 065
     Dates: start: 20180911, end: 20180911
  28. PHENYLEPHRINE [Concomitant]
     Active Substance: PHENYLEPHRINE HYDROCHLORIDE
     Route: 065
     Dates: start: 20180914, end: 20180914
  29. CEFEPIME [Concomitant]
     Active Substance: CEFEPIME HYDROCHLORIDE
     Route: 065
     Dates: start: 20180915, end: 20180915
  30. NOREPINEPHRINE. [Concomitant]
     Active Substance: NOREPINEPHRINE
     Dosage: 0-6 MCG/^
     Route: 065
     Dates: start: 20180915, end: 20180915
  31. MORPHINE [Concomitant]
     Active Substance: MORPHINE
     Route: 065
     Dates: start: 20180918, end: 20180918
  32. METHYLPREDNISOLONE. [Concomitant]
     Active Substance: METHYLPREDNISOLONE
     Route: 065
     Dates: start: 20180917, end: 20180917
  33. AMIODARONE [Interacting]
     Active Substance: AMIODARONE
     Route: 065
     Dates: start: 20180825, end: 20180827
  34. PHENPROCOUMON [Concomitant]
     Active Substance: PHENPROCOUMON
     Route: 065
     Dates: start: 20180909, end: 20180909
  35. NACL [Concomitant]
     Active Substance: SODIUM CHLORIDE
     Route: 065
     Dates: start: 20180902, end: 20180902
  36. GRANISETRON [Concomitant]
     Active Substance: GRANISETRON
     Route: 065
     Dates: start: 20180909, end: 20180909
  37. NOREPINEPHRINE. [Concomitant]
     Active Substance: NOREPINEPHRINE
     Dosage: 0-13 MCG/^
     Route: 065
     Dates: start: 20180916, end: 20180916
  38. ROSUVASTATIN. [Suspect]
     Active Substance: ROSUVASTATIN
     Indication: HYPERCHOLESTEROLAEMIA
     Dosage: 10 MG
     Route: 048
     Dates: start: 2013, end: 20180909
  39. AMIODARONE [Interacting]
     Active Substance: AMIODARONE
     Route: 065
     Dates: start: 20180902, end: 20180911
  40. SPIRONOLACTONE. [Concomitant]
     Active Substance: SPIRONOLACTONE
     Route: 065
     Dates: start: 20180822, end: 20180829
  41. PHENPROCOUMON [Concomitant]
     Active Substance: PHENPROCOUMON
     Route: 065
     Dates: start: 20180906, end: 20180906
  42. FUROSEMIDE. [Concomitant]
     Active Substance: FUROSEMIDE
     Route: 065
     Dates: start: 20180822, end: 20180822
  43. VALERIAN AND HOPS [Concomitant]
     Route: 065
     Dates: start: 20180826, end: 20180911
  44. PREDNISONE. [Concomitant]
     Active Substance: PREDNISONE
     Route: 065
     Dates: start: 20180903, end: 20180907
  45. PARAFFIN [Concomitant]
     Active Substance: PARAFFIN
     Route: 065
     Dates: start: 20180913, end: 20180917
  46. SENNOSIDES. [Concomitant]
     Active Substance: SENNOSIDES
     Route: 065
     Dates: start: 20180907, end: 20180907
  47. METOCLOPRAMIDE. [Concomitant]
     Active Substance: METOCLOPRAMIDE
     Route: 065
     Dates: start: 20180912, end: 20180915
  48. VALSARTAN. [Concomitant]
     Active Substance: VALSARTAN
     Route: 065
     Dates: start: 20180915, end: 20180915
  49. THIAMINE. [Concomitant]
     Active Substance: THIAMINE
     Route: 065
     Dates: start: 20180914, end: 20180917
  50. AMIODARONE [Interacting]
     Active Substance: AMIODARONE
     Route: 065
     Dates: start: 20180916, end: 20180917
  51. ACETYLSALICYLIC ACID [Concomitant]
     Active Substance: ASPIRIN
     Dosage: 100 MG
     Route: 065
     Dates: start: 20180821, end: 20180904
  52. FUROSEMIDE. [Concomitant]
     Active Substance: FUROSEMIDE
     Route: 065
     Dates: start: 20180909, end: 20180909
  53. ACETAMINOPHEN. [Concomitant]
     Active Substance: ACETAMINOPHEN
     Route: 065
     Dates: start: 20180823, end: 20180823
  54. SODIUM BICARBONATE. [Concomitant]
     Active Substance: SODIUM BICARBONATE
     Route: 065
     Dates: start: 20180828, end: 20180828
  55. SODIUM BICARBONATE. [Concomitant]
     Active Substance: SODIUM BICARBONATE
     Route: 065
     Dates: start: 20180912, end: 20180912
  56. SODIUM BICARBONATE. [Concomitant]
     Active Substance: SODIUM BICARBONATE
     Route: 065
     Dates: start: 20180913, end: 20180913
  57. GUAIFENESIN/CODEIN PHOSPHATE [Concomitant]
     Route: 065
     Dates: start: 20180830, end: 20180830
  58. NACL [Concomitant]
     Active Substance: SODIUM CHLORIDE
     Route: 065
     Dates: start: 20180831, end: 20180831
  59. GRANISETRON [Concomitant]
     Active Substance: GRANISETRON
     Route: 065
     Dates: start: 20180910, end: 20180910
  60. CODEIN [Concomitant]
     Active Substance: CODEINE
     Route: 065
     Dates: start: 20180913, end: 20180915
  61. VALSARTAN. [Concomitant]
     Active Substance: VALSARTAN
     Route: 065
     Dates: start: 20180914, end: 20180914
  62. AMIODARONE [Interacting]
     Active Substance: AMIODARONE
     Route: 065
     Dates: start: 20180918, end: 20180918
  63. SACUBITRIL/VALSARTAN [Interacting]
     Active Substance: SACUBITRIL\VALSARTAN
     Route: 065
     Dates: start: 20180820, end: 20180820
  64. HEPARIN [Concomitant]
     Active Substance: HEPARIN SODIUM
     Route: 065
     Dates: start: 20180820, end: 20180820
  65. FUROSEMIDE. [Concomitant]
     Active Substance: FUROSEMIDE
     Route: 065
     Dates: start: 20180913, end: 20180913
  66. FUROSEMIDE. [Concomitant]
     Active Substance: FUROSEMIDE
     Route: 065
     Dates: start: 20180916, end: 20180916
  67. ACETAMINOPHEN. [Concomitant]
     Active Substance: ACETAMINOPHEN
     Route: 065
     Dates: start: 20180824, end: 20180908
  68. SODIUM BICARBONATE. [Concomitant]
     Active Substance: SODIUM BICARBONATE
     Route: 065
     Dates: start: 20180910, end: 20180910
  69. SENNOSIDES. [Concomitant]
     Active Substance: SENNOSIDES
     Route: 065
     Dates: start: 20180912, end: 20180912
  70. GRANISETRON [Concomitant]
     Active Substance: GRANISETRON
     Route: 065
     Dates: start: 20180912, end: 20180914
  71. DOBUTAMINE [Concomitant]
     Active Substance: DOBUTAMINE HYDROCHLORIDE
     Dosage: 0-300 MCG/
     Route: 065
     Dates: start: 20180910, end: 20180912
  72. DOBUTAMINE [Concomitant]
     Active Substance: DOBUTAMINE HYDROCHLORIDE
     Dosage: 0-100 MCG/
     Route: 065
     Dates: start: 20180913, end: 20180913
  73. NITROGLYCERIN. [Concomitant]
     Active Substance: NITROGLYCERIN
     Dosage: 0-3 MG/H
     Route: 065
     Dates: start: 20180910, end: 20180911
  74. BECOZYM FORT [Concomitant]
     Dosage: 1
     Route: 065
     Dates: start: 20180914, end: 20180918
  75. DOMPERIDONE [Concomitant]
     Active Substance: DOMPERIDONE
     Route: 065
     Dates: start: 20180916, end: 20180916
  76. MORPHINE [Concomitant]
     Active Substance: MORPHINE
     Route: 065
     Dates: start: 20180919, end: 20180919
  77. MIDAZOLAM [Concomitant]
     Active Substance: MIDAZOLAM HYDROCHLORIDE
     Route: 065
     Dates: start: 20180918, end: 20180918
  78. AMIODARONE [Interacting]
     Active Substance: AMIODARONE
     Route: 065
     Dates: start: 20180824, end: 20180824
  79. AMIODARONE [Interacting]
     Active Substance: AMIODARONE
     Route: 065
     Dates: start: 20180828, end: 20180901
  80. SACUBITRIL/VALSARTAN [Interacting]
     Active Substance: SACUBITRIL\VALSARTAN
     Route: 065
     Dates: start: 20180821, end: 20180830
  81. SACUBITRIL/VALSARTAN [Interacting]
     Active Substance: SACUBITRIL\VALSARTAN
     Route: 065
  82. METOPROLOL. [Concomitant]
     Active Substance: METOPROLOL
     Route: 065
     Dates: start: 20180907, end: 20180910
  83. TORASEMIDE [Concomitant]
     Active Substance: TORSEMIDE
     Route: 065
     Dates: start: 20180821, end: 20180824
  84. SITAGLIPTIN [Concomitant]
     Active Substance: SITAGLIPTIN
     Route: 065
     Dates: start: 20180820, end: 20180820
  85. SITAGLIPTIN [Concomitant]
     Active Substance: SITAGLIPTIN
     Route: 065
     Dates: start: 20180830, end: 20180831
  86. PHENPROCOUMON [Concomitant]
     Active Substance: PHENPROCOUMON
     Route: 065
     Dates: start: 20180901, end: 20180901
  87. FUROSEMIDE. [Concomitant]
     Active Substance: FUROSEMIDE
     Route: 065
     Dates: start: 20180826, end: 20180826
  88. FUROSEMIDE. [Concomitant]
     Active Substance: FUROSEMIDE
     Route: 065
     Dates: start: 20180914, end: 20180914
  89. FUROSEMIDE. [Concomitant]
     Active Substance: FUROSEMIDE
     Route: 065
     Dates: start: 20180914, end: 20180914
  90. SODIUM BICARBONATE. [Concomitant]
     Active Substance: SODIUM BICARBONATE
     Route: 065
     Dates: start: 20180915, end: 20180915
  91. PANTOPRAZOL [Concomitant]
     Active Substance: PANTOPRAZOLE SODIUM
     Route: 065
     Dates: start: 20180829, end: 20180918
  92. GUAIFENESIN/CODEIN PHOSPHATE [Concomitant]
     Route: 065
     Dates: start: 20180908, end: 20180909
  93. GUAIFENESIN/CODEIN PHOSPHATE [Concomitant]
     Route: 065
     Dates: start: 20180910, end: 20180910
  94. SENNOSIDES. [Concomitant]
     Active Substance: SENNOSIDES
     Route: 065
     Dates: start: 20180913, end: 20180917
  95. SENNOSIDES. [Concomitant]
     Active Substance: SENNOSIDES
     Route: 065
     Dates: start: 20180918, end: 20180918
  96. GRANISETRON [Concomitant]
     Active Substance: GRANISETRON
     Route: 065
     Dates: start: 20180908, end: 20180908
  97. HUMAN PROTHROMBIN COMPLEX [Concomitant]
     Route: 065
     Dates: start: 20180910, end: 20180910
  98. DOBUTAMINE [Concomitant]
     Active Substance: DOBUTAMINE HYDROCHLORIDE
     Dosage: 0-150 MCG/
     Route: 065
     Dates: start: 20180914, end: 20180914
  99. DOBUTAMINE [Concomitant]
     Active Substance: DOBUTAMINE HYDROCHLORIDE
     Dosage: 0-200 MCG/^Q
     Route: 065
     Dates: start: 20180915, end: 20180915
  100. CERNEVIT [Concomitant]
     Active Substance: VITAMINS
     Dosage: 1 VIAL PER DAY
     Route: 065
     Dates: start: 20180911, end: 20180917
  101. VALSARTAN. [Concomitant]
     Active Substance: VALSARTAN
     Route: 065
     Dates: start: 20180912, end: 20180912
  102. CEFEPIME [Concomitant]
     Active Substance: CEFEPIME HYDROCHLORIDE
     Route: 065
     Dates: start: 20180916, end: 20180916
  103. DOMPERIDONE [Concomitant]
     Active Substance: DOMPERIDONE
     Route: 065
     Dates: start: 20180918, end: 20180918
  104. AMIODARONE [Interacting]
     Active Substance: AMIODARONE
     Route: 065
     Dates: start: 20180916, end: 20180917
  105. METOPROLOL. [Concomitant]
     Active Substance: METOPROLOL
     Route: 065
     Dates: start: 20180821, end: 20180831
  106. GUAIFENESIN/CODEIN PHOSPHATE [Concomitant]
     Route: 065
     Dates: start: 20180828, end: 20180829
  107. GUAIFENESIN/CODEIN PHOSPHATE [Concomitant]
     Route: 065
     Dates: start: 20180903, end: 20180907
  108. GUAIFENESIN/CODEIN PHOSPHATE [Concomitant]
     Route: 065
     Dates: start: 20180912, end: 20180912
  109. PARAFFIN [Concomitant]
     Active Substance: PARAFFIN
     Route: 065
     Dates: start: 20180907, end: 20180907
  110. PARAFFIN [Concomitant]
     Active Substance: PARAFFIN
     Route: 065
     Dates: start: 20180912, end: 20180912
  111. PARAFFIN [Concomitant]
     Active Substance: PARAFFIN
     Route: 065
     Dates: start: 20180918, end: 20180918
  112. PHYTOMENADIONE [Concomitant]
     Active Substance: PHYTONADIONE
     Route: 065
     Dates: start: 20180910, end: 20180917
  113. LEVOSIMENDAN [Concomitant]
     Active Substance: LEVOSIMENDAN
     Route: 065
     Dates: start: 20180915, end: 20180915
  114. LEVOSIMENDAN [Concomitant]
     Active Substance: LEVOSIMENDAN
     Route: 065
     Dates: start: 20180916, end: 20180916
  115. NOREPINEPHRINE. [Concomitant]
     Active Substance: NOREPINEPHRINE
     Dosage: 0-10
     Route: 065
     Dates: start: 20180917, end: 20180918
  116. DOMPERIDONE [Concomitant]
     Active Substance: DOMPERIDONE
     Route: 065
     Dates: start: 20180917, end: 20180917
  117. MORPHINE [Concomitant]
     Active Substance: MORPHINE
     Route: 065
     Dates: start: 20180917, end: 20180917
  118. MIDAZOLAM [Concomitant]
     Active Substance: MIDAZOLAM HYDROCHLORIDE
     Route: 065
     Dates: start: 20180919, end: 20180919

REACTIONS (2)
  - Rhabdomyolysis [Fatal]
  - Drug interaction [Unknown]

NARRATIVE: CASE EVENT DATE: 20180909
